FAERS Safety Report 17242870 (Version 5)
Quarter: 2025Q3

REPORT INFORMATION
  Report Type: Spontaneous
  Country: EU (occurrence: EU)
  Receive Date: 20200107
  Receipt Date: 20250905
  Transmission Date: 20251020
  Serious: Yes (Hospitalization, Other)
  Sender: MYLAN
  Company Number: EU-SA-2019SA259061

PATIENT
  Age: 60 Year
  Sex: Female

DRUGS (35)
  1. METFORMIN [Concomitant]
     Active Substance: METFORMIN HYDROCHLORIDE
     Indication: Steroid diabetes
     Dosage: 850 MILLIGRAM, QD, 1X PER DAY
  2. METFORMIN [Concomitant]
     Active Substance: METFORMIN HYDROCHLORIDE
     Indication: Diabetes mellitus
  3. FLUDARABINE [Suspect]
     Active Substance: FLUDARABINE PHOSPHATE
     Indication: Chronic lymphocytic leukaemia
     Dosage: 40 MG, QD, DAY 1-3
  4. FLUDARABINE [Suspect]
     Active Substance: FLUDARABINE PHOSPHATE
     Dosage: 40 MG, QD, DAY 1-3
  5. FLUDARABINE [Suspect]
     Active Substance: FLUDARABINE PHOSPHATE
     Dosage: 42.5 MG, QD, DAY 1-3
  6. FLUDARABINE [Suspect]
     Active Substance: FLUDARABINE PHOSPHATE
  7. FLUDARABINE [Suspect]
     Active Substance: FLUDARABINE PHOSPHATE
  8. FLUDARABINE [Suspect]
     Active Substance: FLUDARABINE PHOSPHATE
  9. AMOXICILLIN\CLAVULANIC ACID [Suspect]
     Active Substance: AMOXICILLIN\CLAVULANIC ACID
     Indication: Product used for unknown indication
     Dosage: 2000 MILLIGRAM, QD,  PER DAY
  10. DEXAMETHASONE [Suspect]
     Active Substance: DEXAMETHASONE
     Indication: Chronic lymphocytic leukaemia stage 4
     Dosage: 12 MG, QD DAY 1-7 (SECOND LINE TREATMENT)
  11. DEXAMETHASONE [Suspect]
     Active Substance: DEXAMETHASONE
     Dosage: 40 MG, QD DAY 1 (FIRST LINE TREATMENT)
  12. CYCLOPHOSPHAMIDE [Suspect]
     Active Substance: CYCLOPHOSPHAMIDE
     Indication: Chronic lymphocytic leukaemia stage 4
     Dosage: 1000 MG, QD DAY 1 (FIRST LINE OF TREATMENT)
  13. CYCLOPHOSPHAMIDE [Suspect]
     Active Substance: CYCLOPHOSPHAMIDE
     Dosage: 400 MG, QD DAYS 1-3
  14. CYCLOPHOSPHAMIDE [Suspect]
     Active Substance: CYCLOPHOSPHAMIDE
     Dosage: 425 MG, QD DAYS 1-3
  15. CYCLOPHOSPHAMIDE [Suspect]
     Active Substance: CYCLOPHOSPHAMIDE
     Dosage: 1300 MG, QD DAY 1 (SECOND LINE OF TREATMENT)
  16. CYCLOPHOSPHAMIDE [Suspect]
     Active Substance: CYCLOPHOSPHAMIDE
     Dosage: 400 MG, QD DAYS 1-3
  17. RITUXIMAB [Suspect]
     Active Substance: RITUXIMAB
     Indication: Chronic lymphocytic leukaemia stage 4
     Dosage: 600 MG, QD, DAY 1
  18. RITUXIMAB [Suspect]
     Active Substance: RITUXIMAB
     Dosage: 850 MG, QD, DAY 1
  19. RITUXIMAB [Suspect]
     Active Substance: RITUXIMAB
     Dosage: 640 MG, QD, DAY 1
  20. RITUXIMAB [Suspect]
     Active Substance: RITUXIMAB
     Dosage: 650, MG/DAY DAY 1 (FIRST LINE TREATMENT)
  21. RITUXIMAB [Suspect]
     Active Substance: RITUXIMAB
     Dosage: 650 MG/DAY DAY 1 (SECOND LINE TREATMENT)
  22. RITUXIMAB [Suspect]
     Active Substance: RITUXIMAB
     Dosage: 600 MILLIGRAM, QD
  23. METHYLPREDNISOLONE [Suspect]
     Active Substance: METHYLPREDNISOLONE
     Indication: Chronic lymphocytic leukaemia recurrent
  24. CIPROFLOXACIN [Suspect]
     Active Substance: CIPROFLOXACIN
     Indication: Product used for unknown indication
     Dosage: 1000 MILLIGRAM, QD, 1X PER DAY
  25. DECADRON (DEXAMETHASONE SODIUM PHOSPHATE) [Suspect]
     Active Substance: DEXAMETHASONE SODIUM PHOSPHATE
     Indication: Chronic lymphocytic leukaemia
     Dosage: 40 MILLIGRAM, QD, DAY 1
  26. DECADRON (DEXAMETHASONE SODIUM PHOSPHATE) [Suspect]
     Active Substance: DEXAMETHASONE SODIUM PHOSPHATE
     Dosage: 12MILLIGRAM, QD, 1-7 DAY
  27. DECADRON (DEXAMETHASONE SODIUM PHOSPHATE) [Suspect]
     Active Substance: DEXAMETHASONE SODIUM PHOSPHATE
  28. DECADRON (DEXAMETHASONE SODIUM PHOSPHATE) [Suspect]
     Active Substance: DEXAMETHASONE SODIUM PHOSPHATE
  29. DECADRON (DEXAMETHASONE SODIUM PHOSPHATE) [Suspect]
     Active Substance: DEXAMETHASONE SODIUM PHOSPHATE
  30. FILGRASTIM [Suspect]
     Active Substance: FILGRASTIM
     Indication: Product used for unknown indication
  31. FLUCONAZOLE [Suspect]
     Active Substance: FLUCONAZOLE
     Indication: Product used for unknown indication
     Dosage: 100 MILLIGRAM, QD, 1X PER DAY
  32. SIMVASTATIN [Concomitant]
     Active Substance: SIMVASTATIN
     Indication: Hypercholesterolaemia
     Dosage: 20 MILLIGRAM, QD, 20 MG, 1X PER DAY
  33. RAMIPRIL [Concomitant]
     Active Substance: RAMIPRIL
     Indication: Hypertension
     Dosage: 5 MILLIGRAM, QD, 1X PER DAY
  34. METHYLPREDNISOLONE [Concomitant]
     Active Substance: METHYLPREDNISOLONE
     Indication: Chronic lymphocytic leukaemia
  35. METHYLPREDNISOLONE [Concomitant]
     Active Substance: METHYLPREDNISOLONE
     Indication: Chronic lymphocytic leukaemia recurrent

REACTIONS (15)
  - Heart rate increased [Unknown]
  - Tachycardia [Unknown]
  - Pulmonary embolism [Unknown]
  - Chest pain [Unknown]
  - Dyspnoea exertional [Unknown]
  - Breath sounds abnormal [Unknown]
  - Fatigue [Unknown]
  - Pyrexia [Unknown]
  - Malaise [Unknown]
  - Blood disorder [Unknown]
  - Chronic lymphocytic leukaemia [Unknown]
  - Haemolytic anaemia [Unknown]
  - Neutropenia [Unknown]
  - Chronic myeloid leukaemia recurrent [Unknown]
  - Steroid diabetes [Unknown]
